FAERS Safety Report 12088938 (Version 1)
Quarter: 2016Q1

REPORT INFORMATION
  Report Type: Spontaneous
  Country: US (occurrence: US)
  Receive Date: 20160218
  Receipt Date: 20160218
  Transmission Date: 20160526
  Serious: No
  Sender: FDA-Public Use
  Company Number: US-GLAXOSMITHKLINE-US2016GSK018028

PATIENT
  Age: 61 Year
  Sex: Male

DRUGS (13)
  1. FOLIC ACID. [Concomitant]
     Active Substance: FOLIC ACID
  2. OMEPRAZOLE. [Concomitant]
     Active Substance: OMEPRAZOLE
  3. VITAMIN D3 [Concomitant]
     Active Substance: CHOLECALCIFEROL
  4. LOSARTAN. [Concomitant]
     Active Substance: LOSARTAN
  5. GLUCOSAMINE [Concomitant]
     Active Substance: GLUCOSAMINE
  6. KEPPRA [Concomitant]
     Active Substance: LEVETIRACETAM
  7. TAMSULOSIN HYDROCHLORIDE. [Concomitant]
     Active Substance: TAMSULOSIN HYDROCHLORIDE
  8. TECFIDERA [Concomitant]
     Active Substance: DIMETHYL FUMARATE
  9. BACLOFEN. [Concomitant]
     Active Substance: BACLOFEN
  10. FLONASE [Suspect]
     Active Substance: FLUTICASONE PROPIONATE
     Indication: EUSTACHIAN TUBE DISORDER
     Dosage: UNK
  11. CHONDROITIN MSM (CHONDROITIN SULFATE + GLUCOSAMINE SULFATE + MSM) [Concomitant]
  12. VITAMIN B12 [Concomitant]
     Active Substance: CYANOCOBALAMIN
  13. DEXTROMETHORPHAN HYDROBROMIDE + QUINIDINE SULFATE [Concomitant]

REACTIONS (2)
  - Epistaxis [Recovered/Resolved]
  - Nasal dryness [Recovered/Resolved]
